FAERS Safety Report 5409765-3 (Version None)
Quarter: 2007Q3

REPORT INFORMATION
  Report Type: 
  Country: None (occurrence: None)
  Receive Date: 20070809
  Receipt Date: 20070802
  Transmission Date: 20080115
  Serious: Yes (Hospitalization)
  Sender: FDA-Public Use
  Company Number: US-ASTRAZENECA-2007UW18711

PATIENT
  Age: 17189 Day
  Sex: Female

DRUGS (27)
  1. SEROQUEL [Suspect]
     Route: 048
     Dates: start: 20020917
  2. SEROQUEL [Suspect]
     Route: 048
  3. SEROQUEL [Suspect]
     Route: 048
  4. ZOLOFT [Concomitant]
  5. DEPAKOTE [Concomitant]
  6. DEPAKOTE [Concomitant]
  7. TRAZODONE HCL [Concomitant]
  8. ZYPREXA [Concomitant]
  9. ARTANE [Concomitant]
     Dates: start: 20050811
  10. ASPIRIN [Concomitant]
  11. LASIX [Concomitant]
  12. PANTOPRAZOLE SODIUM [Concomitant]
  13. DSS [Concomitant]
  14. LISINOPRIL [Concomitant]
  15. INDERAL [Concomitant]
  16. GLUCOPHAGE [Concomitant]
  17. ACTOS [Concomitant]
  18. PENTASA [Concomitant]
  19. GLYBURIDE [Concomitant]
  20. DITROPAN XL [Concomitant]
  21. ATENOLOL [Concomitant]
  22. SALSALATE [Concomitant]
  23. LIPITOR [Concomitant]
  24. TRAMADOL HCL [Concomitant]
     Dosage: 1 - 2 TAB Q6 HOURS
  25. ALBUTEROL [Concomitant]
  26. COUMADIN [Concomitant]
  27. MACROBID [Concomitant]

REACTIONS (2)
  - MUSCULAR WEAKNESS [None]
  - TREMOR [None]
